FAERS Safety Report 6829760-7 (Version None)
Quarter: 2010Q3

REPORT INFORMATION
  Report Type: 
  Country: None (occurrence: None)
  Receive Date: 20100709
  Receipt Date: 20080131
  Transmission Date: 20110219
  Serious: No
  Sender: FDA-Public Use
  Company Number: US-PFIZER INC-2007013036

PATIENT
  Sex: Female
  Weight: 49.44 kg

DRUGS (6)
  1. CHANTIX [Suspect]
     Indication: SMOKING CESSATION THERAPY
     Dates: start: 20060101
  2. PAXIL [Concomitant]
  3. XANAX [Concomitant]
  4. DUONEB [Concomitant]
  5. SPIRIVA [Concomitant]
  6. SEREVENT [Concomitant]

REACTIONS (14)
  - ANGER [None]
  - ANXIETY [None]
  - BLOOD CHOLESTEROL DECREASED [None]
  - CONSTIPATION [None]
  - DRUG INEFFECTIVE [None]
  - FATIGUE [None]
  - FEAR [None]
  - HEADACHE [None]
  - INCREASED APPETITE [None]
  - IRRITABILITY [None]
  - SOMNOLENCE [None]
  - UNEVALUABLE EVENT [None]
  - VISION BLURRED [None]
  - WRONG TECHNIQUE IN DRUG USAGE PROCESS [None]
